FAERS Safety Report 18568440 (Version 2)
Quarter: 2021Q3

REPORT INFORMATION
  Report Type: Spontaneous
  Country: ES (occurrence: ES)
  Receive Date: 20201202
  Receipt Date: 20210804
  Transmission Date: 20211014
  Serious: Yes (Hospitalization, Other)
  Sender: FDA-Public Use
  Company Number: ES-ACCORD-209472

PATIENT
  Age: 89 Year
  Sex: Female

DRUGS (1)
  1. METHOTREXATE. [Suspect]
     Active Substance: METHOTREXATE
     Indication: SERONEGATIVE ARTHRITIS

REACTIONS (3)
  - Epstein Barr virus positive mucocutaneous ulcer [Recovered/Resolved]
  - Adenocarcinoma of colon [Recovering/Resolving]
  - Uterine disorder [Recovering/Resolving]
